FAERS Safety Report 6759455-X (Version None)
Quarter: 2010Q2

REPORT INFORMATION
  Report Type: 
  Country: None (occurrence: None)
  Receive Date: 20100607
  Receipt Date: 20100603
  Transmission Date: 20101027
  Serious: Yes (Death)
  Sender: FDA-Public Use
  Company Number: GB-MERCK-1006GBR00021

PATIENT
  Age: 54 Year
  Sex: Male
  Weight: 109 kg

DRUGS (6)
  1. JANUVIA [Suspect]
     Route: 048
     Dates: start: 20100413
  2. AMLODIPINE [Concomitant]
     Indication: HYPERTENSION
     Route: 048
  3. ASPIRIN [Concomitant]
     Route: 048
  4. METFORMIN [Concomitant]
     Route: 048
  5. RAMIPRIL [Concomitant]
     Indication: HYPERTENSION
     Route: 048
  6. SIMVASTATIN [Concomitant]
     Indication: DYSLIPIDAEMIA
     Route: 048

REACTIONS (1)
  - COMPLETED SUICIDE [None]
